FAERS Safety Report 13020739 (Version 1)
Quarter: 2016Q4

REPORT INFORMATION
  Report Type: Spontaneous
  Country: US (occurrence: US)
  Receive Date: 20161212
  Receipt Date: 20161212
  Transmission Date: 20170207
  Serious: Yes (Hospitalization)
  Sender: FDA-Public Use
  Company Number: US-ASTRAZENECA-2016SF29893

PATIENT
  Age: 619 Month
  Sex: Female
  Weight: 113.4 kg

DRUGS (1)
  1. BYDUREON [Suspect]
     Active Substance: EXENATIDE
     Indication: TYPE 2 DIABETES MELLITUS
     Route: 065
     Dates: start: 2016

REACTIONS (10)
  - Spinal deformity [Unknown]
  - Restlessness [Unknown]
  - Gait disturbance [Recovered/Resolved]
  - Injection site pain [Recovered/Resolved]
  - Tonsillar hypertrophy [Recovered/Resolved]
  - Product quality issue [Unknown]
  - Nasal septum deviation [Unknown]
  - Off label use [Unknown]
  - Intervertebral disc degeneration [Recovering/Resolving]
  - Pain [Unknown]

NARRATIVE: CASE EVENT DATE: 201603
